FAERS Safety Report 11965635 (Version 2)
Quarter: 2016Q4

REPORT INFORMATION
  Report Type: Spontaneous
  Country: GB (occurrence: GB)
  Receive Date: 20160127
  Receipt Date: 20161111
  Transmission Date: 20170206
  Serious: Yes (Other)
  Sender: FDA-Public Use
  Company Number: GB-MYLANLABS-2016M1002391

PATIENT

DRUGS (9)
  1. OMEPRAZOLE. [Suspect]
     Active Substance: OMEPRAZOLE
     Indication: DYSPEPSIA
     Dosage: 20 MG, UNK
     Route: 048
     Dates: start: 20151123, end: 20151125
  2. ATORVASTATIN [Concomitant]
     Active Substance: ATORVASTATIN
     Dosage: UNK (LONG TERM- TAKEN FOR AT LEAST 1 YEAR)
  3. LISINOPRIL. [Concomitant]
     Active Substance: LISINOPRIL
     Dosage: UNK (LONG TERM- TAKEN FOR AT LEAST 1 YEAR)
  4. AMLODIPINE [Concomitant]
     Active Substance: AMLODIPINE BESYLATE
     Dosage: UNK (LONG TERM- TAKEN FOR AT LEAST 1 YEAR)
  5. METFORMIN [Concomitant]
     Active Substance: METFORMIN HYDROCHLORIDE
     Dosage: UNK (LONG TERM- TAKEN FOR AT LEAST 1 YEAR)
  6. GABAPENTIN. [Concomitant]
     Active Substance: GABAPENTIN
     Dosage: UNK (LONG TERM- TAKEN FOR AT LEAST 1 YEAR)
  7. BETAHISTINE [Concomitant]
     Active Substance: BETAHISTINE
     Dosage: UNK (LONG TERM- TAKEN FOR AT LEAST 1 YEAR)
  8. PAROXETINE. [Concomitant]
     Active Substance: PAROXETINE
     Dosage: UNK (LONG TERM- TAKEN FOR AT LEAST 1 YEAR)
  9. TRIMETHOPRIM. [Concomitant]
     Active Substance: TRIMETHOPRIM
     Dosage: 200 MG, TID
     Dates: start: 20151119, end: 20151126

REACTIONS (3)
  - Polyarthritis [Recovered/Resolved]
  - Peripheral swelling [Recovered/Resolved]
  - Arthralgia [Recovered/Resolved]

NARRATIVE: CASE EVENT DATE: 20151203
